FAERS Safety Report 10576817 (Version 1)
Quarter: 2014Q4

REPORT INFORMATION
  Report Type: Spontaneous
  Country: GR (occurrence: GR)
  Receive Date: 20141111
  Receipt Date: 20141111
  Transmission Date: 20150529
  Serious: Yes (Death, Other)
  Sender: FDA-Public Use
  Company Number: GR-BRISTOL-MYERS SQUIBB COMPANY-21576145

PATIENT
  Sex: Female

DRUGS (4)
  1. ONDANSETRON [Suspect]
     Active Substance: ONDANSETRON
     Indication: HODGKIN^S DISEASE
     Dosage: 3 DAYS TREATMENT ON 02JUL,03JUL AND 4JUL14.
     Dates: start: 20140702
  2. ETOPOSIDE. [Suspect]
     Active Substance: ETOPOSIDE
     Indication: HODGKIN^S DISEASE
     Dosage: 3 DAYS TREATMENT ON 02JUL,03JUL AND 4JUL14.
     Dates: start: 20140702
  3. ENDOXAN [Suspect]
     Active Substance: CYCLOPHOSPHAMIDE
     Indication: HODGKIN^S DISEASE
     Dates: start: 20140702
  4. ADRIBLASTINA [Suspect]
     Active Substance: DOXORUBICIN HYDROCHLORIDE
     Indication: HODGKIN^S DISEASE
     Dates: start: 20140702

REACTIONS (3)
  - Leukopenia [Unknown]
  - Aspiration [Fatal]
  - Cardiac failure [Fatal]
